FAERS Safety Report 7454352-9 (Version None)
Quarter: 2011Q2

REPORT INFORMATION
  Report Type: 
  Country: None (occurrence: None)
  Receive Date: 20110503
  Receipt Date: 20110419
  Transmission Date: 20111010
  Serious: Yes (Other)
  Sender: FDA-Public Use
  Company Number: TR-RANBAXY-2011RR-43994

PATIENT
  Age: 17 Year
  Sex: Male

DRUGS (5)
  1. CONCERTA [Suspect]
     Indication: ATTENTION DEFICIT/HYPERACTIVITY DISORDER
     Dosage: 54 MG, UNK
  2. RISPERIDONE [Suspect]
     Dosage: 2.5 MG, UNK
  3. RISPERIDONE [Suspect]
     Indication: AGGRESSION
     Dosage: 1 MG, UNK
  4. ARIPIPRAZOLE [Suspect]
     Indication: AGGRESSION
     Dosage: 5 MG, UNK
  5. RISPERIDONE [Suspect]
     Dosage: 0.75 MG, UNK

REACTIONS (2)
  - DRUG INTERACTION [None]
  - PSYCHOTIC DISORDER [None]
